FAERS Safety Report 23314745 (Version 6)
Quarter: 2024Q3

REPORT INFORMATION
  Report Type: Spontaneous
  Country: JP (occurrence: JP)
  Receive Date: 20231219
  Receipt Date: 20240812
  Transmission Date: 20241017
  Serious: Yes (Death, Hospitalization)
  Sender: JOHNSON AND JOHNSON
  Company Number: JP-JNJFOC-20231249724

PATIENT
  Age: 75 Year
  Sex: Male

DRUGS (10)
  1. UPTRAVI [Suspect]
     Active Substance: SELEXIPAG
     Indication: Pulmonary hypertension
     Route: 048
     Dates: start: 20231025, end: 20240119
  2. UPTRAVI [Suspect]
     Active Substance: SELEXIPAG
     Route: 048
     Dates: start: 20231110, end: 20240119
  3. UPTRAVI [Suspect]
     Active Substance: SELEXIPAG
     Route: 048
     Dates: start: 20240401
  4. UPTRAVI [Suspect]
     Active Substance: SELEXIPAG
     Route: 048
     Dates: start: 20240401, end: 20240411
  5. UPTRAVI [Suspect]
     Active Substance: SELEXIPAG
     Route: 048
     Dates: start: 20240412, end: 20240611
  6. XARELTO [Concomitant]
     Active Substance: RIVAROXABAN
  7. UNSPECIFIED INGREDIENT [Concomitant]
     Active Substance: UNSPECIFIED INGREDIENT
     Indication: Interstitial lung disease
     Dosage: THERAPY END DATE: /JUN/2024
     Dates: start: 20240605
  8. PREDNISOLONE [Concomitant]
     Active Substance: PREDNISOLONE
     Dosage: THERAPY START DATE: /JUN/2024, THERAPY END DATE: /JUN/2024
  9. PREDNISOLONE [Concomitant]
     Active Substance: PREDNISOLONE
     Dosage: THERAPY END DATE : //2024
     Dates: start: 20240608
  10. TACROLIMUS [Concomitant]
     Active Substance: TACROLIMUS
     Dosage: THERAPY END DATE: /JUN/2024
     Dates: start: 20240223

REACTIONS (4)
  - Interstitial lung disease [Fatal]
  - Interstitial lung disease [Unknown]
  - Cardiac failure congestive [Unknown]
  - Dyspnoea [Not Recovered/Not Resolved]

NARRATIVE: CASE EVENT DATE: 20230101
